FAERS Safety Report 6123399-7 (Version None)
Quarter: 2009Q1

REPORT INFORMATION
  Report Type: 
  Country: None (occurrence: None)
  Receive Date: 20090318
  Receipt Date: 20090310
  Transmission Date: 20090719
  Serious: Yes (Death, Hospitalization)
  Sender: FDA-Public Use
  Company Number: ES-AMGEN-US338363

PATIENT
  Age: 59 Year
  Sex: Female

DRUGS (3)
  1. ENBREL [Suspect]
     Indication: RHEUMATOID ARTHRITIS
     Dosage: 50 MG PER WEEK OF ENBREL PFS
     Route: 058
     Dates: start: 20030701, end: 20090201
  2. METOJECT [Suspect]
     Indication: RHEUMATOID ARTHRITIS
     Route: 058
     Dates: start: 19980101, end: 20050601
  3. METOJECT [Suspect]
     Dates: start: 20050601, end: 20090201

REACTIONS (2)
  - CEREBRAL HAEMORRHAGE [None]
  - PANCYTOPENIA [None]
